FAERS Safety Report 12233884 (Version 1)
Quarter: 2016Q2

REPORT INFORMATION
  Report Type: Spontaneous
  Country: US (occurrence: None)
  Receive Date: 20160401
  Receipt Date: 20160401
  Transmission Date: 20160815
  Serious: No
  Sender: FDA-Public Use
  Company Number: None

PATIENT
  Age: 67 Year
  Sex: Female

DRUGS (11)
  1. LEVOFLOXACIN. [Concomitant]
     Active Substance: LEVOFLOXACIN
  2. TRIAMCINOLONE [Concomitant]
     Active Substance: TRIAMCINOLONE
  3. EXEMESTANE. [Concomitant]
     Active Substance: EXEMESTANE
  4. PROLIA [Concomitant]
     Active Substance: DENOSUMAB
  5. WARFARIN [Concomitant]
     Active Substance: WARFARIN
  6. HCTZ [Concomitant]
     Active Substance: HYDROCHLOROTHIAZIDE
  7. IBRANCE [Suspect]
     Active Substance: PALBOCICLIB
     Indication: BREAST CANCER
     Route: 048
     Dates: start: 20160303
  8. LETROZOLE. [Concomitant]
     Active Substance: LETROZOLE
  9. AMOXICILLIN. [Concomitant]
     Active Substance: AMOXICILLIN
  10. AZITHROMYCIN ANHYDROUS. [Concomitant]
     Active Substance: AZITHROMYCIN ANHYDROUS
  11. AFINITOR [Concomitant]
     Active Substance: EVEROLIMUS

REACTIONS (2)
  - White blood cell count decreased [None]
  - Dizziness [None]

NARRATIVE: CASE EVENT DATE: 201603
